FAERS Safety Report 8347398-X (Version None)
Quarter: 2012Q2

REPORT INFORMATION
  Report Type: 
  Country: None (occurrence: None)
  Receive Date: 20120509
  Receipt Date: 20120503
  Transmission Date: 20120825
  Serious: Yes (Other)
  Sender: FDA-Public Use
  Company Number: GB-SANOFI-AVENTIS-2012SA031599

PATIENT
  Age: 64 Year
  Sex: Male
  Weight: 78 kg

DRUGS (3)
  1. ENOXAPARIN SODIUM [Suspect]
     Indication: PROPHYLAXIS
     Dosage: THERAPEUTIC DOSE GIVEN.
     Route: 065
     Dates: start: 20120404
  2. CLOPIDOGREL BISULFATE [Suspect]
     Dosage: THERAPEUTIC DOSE.
     Route: 065
     Dates: start: 20120404, end: 20120413
  3. ASPIRIN [Suspect]
     Dosage: THERAPEUTIC DOSE GIVEN.
     Route: 065
     Dates: start: 20120404, end: 20120413

REACTIONS (5)
  - MECHANICAL VENTILATION COMPLICATION [None]
  - ABDOMINAL COMPARTMENT SYNDROME [None]
  - HAEMORRHAGE [None]
  - RENAL IMPAIRMENT [None]
  - HAEMODYNAMIC INSTABILITY [None]
